FAERS Safety Report 6756912-7 (Version None)
Quarter: 2010Q2

REPORT INFORMATION
  Report Type: 
  Country: None (occurrence: None)
  Receive Date: 20100604
  Receipt Date: 20100524
  Transmission Date: 20101027
  Serious: Yes (Death, Other)
  Sender: FDA-Public Use
  Company Number: PHHY2010JP34765

PATIENT
  Sex: Male
  Weight: 60 kg

DRUGS (14)
  1. ICL670A ICL+DISTAB [Suspect]
     Indication: APLASIA PURE RED CELL
     Dosage: 1000 MG DAILY
     Route: 048
     Dates: start: 20090325, end: 20090330
  2. ICL670A ICL+DISTAB [Suspect]
     Indication: IRON OVERLOAD
     Dosage: 1000 MG DAILY
     Route: 048
     Dates: start: 20090507, end: 20090511
  3. ICL670A ICL+DISTAB [Suspect]
     Dosage: 500 MG DAILY
     Route: 048
     Dates: start: 20090606, end: 20090607
  4. ICL670A ICL+DISTAB [Suspect]
     Dosage: 500 MG DAILY
     Route: 048
     Dates: start: 20090619, end: 20090718
  5. NEORAL [Suspect]
     Indication: APLASIA PURE RED CELL
     Dosage: 200 MG DAILY
     Route: 048
     Dates: start: 20030222
  6. PREDONINE [Suspect]
     Indication: APLASIA PURE RED CELL
     Dosage: UNK
     Route: 048
     Dates: start: 20070627, end: 20090828
  7. PREDONINE [Suspect]
     Dosage: UNK
     Route: 048
     Dates: start: 20090829
  8. DIOVAN [Concomitant]
     Dosage: 160 MG, UNK
     Route: 048
     Dates: start: 20081201
  9. CALCIUM LACTATE [Concomitant]
     Indication: PROPHYLAXIS
     Dosage: UNK
     Route: 048
     Dates: start: 20070627
  10. MUCOSTA [Concomitant]
     Indication: PROPHYLAXIS
     Dosage: 300 MG, UNK
     Route: 048
     Dates: start: 20070710
  11. NORVASC [Concomitant]
     Dosage: 5 MG, UNK
     Route: 048
     Dates: start: 20081201
  12. CIPROFLOXACIN HCL [Concomitant]
     Indication: PROPHYLAXIS
     Dosage: 600 MG, UNK
     Route: 048
     Dates: start: 20090328, end: 20090331
  13. RED BLOOD CELLS [Concomitant]
     Dosage: 2 UNITS EVERY 2 WEEKS
     Dates: start: 20021228, end: 20030301
  14. RED BLOOD CELLS [Concomitant]
     Dosage: 2 UNITS EVERY 2 WEEKS
     Dates: start: 20080419

REACTIONS (11)
  - ALANINE AMINOTRANSFERASE INCREASED [None]
  - ASPARTATE AMINOTRANSFERASE INCREASED [None]
  - C-REACTIVE PROTEIN INCREASED [None]
  - DECREASED APPETITE [None]
  - DIARRHOEA [None]
  - DISSEMINATED TUBERCULOSIS [None]
  - DUODENAL ULCER [None]
  - NAUSEA [None]
  - PHARYNGITIS [None]
  - SERUM FERRITIN INCREASED [None]
  - VIRAL INFECTION [None]
